FAERS Safety Report 16840290 (Version 2)
Quarter: 2021Q4

REPORT INFORMATION
  Report Type: Report from Study
  Country: CA (occurrence: CA)
  Receive Date: 20190923
  Receipt Date: 20211223
  Transmission Date: 20220303
  Serious: Yes (Other)
  Sender: FDA-Public Use
  Company Number: CA-SA-2017SA257956

PATIENT
  Age: 30 Year
  Sex: Female

DRUGS (10)
  1. ALEMTUZUMAB [Suspect]
     Active Substance: ALEMTUZUMAB
     Indication: Relapsing-remitting multiple sclerosis
     Dosage: 12 MG,QD
     Route: 041
     Dates: start: 20171212, end: 20171214
  2. METHYLPREDNISOLONE [Concomitant]
     Active Substance: METHYLPREDNISOLONE
     Indication: Premedication
     Dosage: 1 G,UNK
     Route: 042
     Dates: start: 20171212, end: 20171214
  3. BENADRYL [Concomitant]
     Active Substance: DIPHENHYDRAMINE HYDROCHLORIDE
     Indication: Premedication
     Dosage: 50 MG,PRN
     Dates: start: 20171212
  4. GRAVOL [Concomitant]
     Active Substance: DIMENHYDRINATE
     Indication: Premedication
     Dosage: 50 MG,UNK
     Route: 048
     Dates: start: 20171212, end: 20171214
  5. CIMETIDINE [Concomitant]
     Active Substance: CIMETIDINE
     Indication: Premedication
     Dosage: 200 MG,UNK
     Route: 048
     Dates: start: 20171212, end: 20171214
  6. ACYCLOVIR [Concomitant]
     Active Substance: ACYCLOVIR
     Indication: Premedication
     Dosage: 200 MG,BID
     Route: 048
     Dates: start: 20171212
  7. ACETAMINOPHEN [Concomitant]
     Active Substance: ACETAMINOPHEN
     Indication: Premedication
     Dosage: UNK UNK,PRN
     Route: 048
     Dates: start: 20171212
  8. VITAMIN B COMPLEX [Concomitant]
     Active Substance: CYANOCOBALAMIN\DEXPANTHENOL\NIACINAMIDE\PYRIDOXINE HYDROCHLORIDE\RIBOFLAVIN 5^-PHOSPHATE SODIUM\THIA
     Dosage: UNK UNK,QD
     Route: 048
  9. MAGNESIUM [Concomitant]
     Active Substance: MAGNESIUM
     Dosage: UNK UNK,QD
     Route: 048
  10. ERGOCALCIFEROL [Concomitant]
     Active Substance: ERGOCALCIFEROL
     Dosage: UNK UNK,QD
     Route: 048

REACTIONS (40)
  - Bradycardia [Recovered/Resolved]
  - Neutropenia [Unknown]
  - Neutrophil count decreased [Not Recovered/Not Resolved]
  - Asthenia [Not Recovered/Not Resolved]
  - Anxiety [Not Recovered/Not Resolved]
  - Dyspnoea [Not Recovered/Not Resolved]
  - Feeling abnormal [Not Recovered/Not Resolved]
  - Chromaturia [Recovered/Resolved]
  - Pollakiuria [Not Recovered/Not Resolved]
  - pH urine increased [Not Recovered/Not Resolved]
  - Urine output increased [Not Recovered/Not Resolved]
  - Muscle spasticity [Not Recovered/Not Resolved]
  - Dry throat [Recovered/Resolved]
  - Urine ketone body present [Recovered/Resolved]
  - Blood creatinine decreased [Recovered/Resolved]
  - Decreased appetite [Recovering/Resolving]
  - Back pain [Not Recovered/Not Resolved]
  - Urine abnormality [Recovered/Resolved]
  - Dyspnoea [Recovered/Resolved]
  - Urine leukocyte esterase positive [Recovered/Resolved]
  - Red blood cell count decreased [Recovered/Resolved]
  - Blood urine present [Recovered/Resolved]
  - Headache [Recovered/Resolved]
  - Urticaria [Recovered/Resolved]
  - Pruritus [Recovered/Resolved]
  - Flushing [Recovered/Resolved]
  - White blood cell count decreased [Not Recovered/Not Resolved]
  - Chest discomfort [Recovered/Resolved]
  - Lymphocyte count decreased [Not Recovered/Not Resolved]
  - Nausea [Recovered/Resolved]
  - Pruritus [Recovered/Resolved]
  - Memory impairment [Not Recovered/Not Resolved]
  - Red cell distribution width decreased [Recovered/Resolved]
  - Skin odour abnormal [Not Recovered/Not Resolved]
  - Dry skin [Not Recovered/Not Resolved]
  - Confusional state [Not Recovered/Not Resolved]
  - Renal disorder [Not Recovered/Not Resolved]
  - Hyperhidrosis [Not Recovered/Not Resolved]
  - Pain [Not Recovered/Not Resolved]
  - Fatigue [Not Recovered/Not Resolved]

NARRATIVE: CASE EVENT DATE: 20171201
